FAERS Safety Report 9815903 (Version 1)
Quarter: 2014Q1

REPORT INFORMATION
  Report Type: Spontaneous
  Country: US (occurrence: US)
  Receive Date: 20140114
  Receipt Date: 20140114
  Transmission Date: 20141002
  Serious: No
  Sender: FDA-Public Use
  Company Number: US-B.I. PHARMACEUTICALS,INC./RIDGEFIELD-2014-BI-00553BP

PATIENT
  Sex: Male
  Weight: 91 kg

DRUGS (1)
  1. SPIRIVA [Suspect]
     Indication: INCREASED UPPER AIRWAY SECRETION
     Dosage: 18 MCG
     Route: 055
     Dates: start: 2012

REACTIONS (1)
  - Off label use [Unknown]
